FAERS Safety Report 12383296 (Version 2)
Quarter: 2016Q2

REPORT INFORMATION
  Report Type: Spontaneous
  Country: US (occurrence: US)
  Receive Date: 20160518
  Receipt Date: 20160531
  Transmission Date: 20160815
  Serious: Yes (Other)
  Sender: FDA-Public Use
  Company Number: US-PFIZER INC-2016261473

PATIENT
  Age: 57 Year
  Sex: Male

DRUGS (1)
  1. GENOTROPIN MQ [Suspect]
     Active Substance: SOMATROPIN
     Indication: HYPOTHALAMO-PITUITARY DISORDER
     Dosage: 0.2 MG, DAILY
     Route: 058
     Dates: start: 1993

REACTIONS (5)
  - Diabetes mellitus [Unknown]
  - Nausea [Unknown]
  - Laceration [Unknown]
  - Headache [Unknown]
  - Pain [Unknown]
